FAERS Safety Report 25323071 (Version 2)
Quarter: 2025Q2

REPORT INFORMATION
  Report Type: Spontaneous
  Country: PT (occurrence: PT)
  Receive Date: 20250516
  Receipt Date: 20250611
  Transmission Date: 20250716
  Serious: Yes (Death, Other)
  Sender: NOVARTIS
  Company Number: PT-002147023-NVSC2025PT078353

PATIENT
  Sex: Male

DRUGS (1)
  1. LUTETIUM LU-177 VIPIVOTIDE TETRAXETAN [Suspect]
     Active Substance: LUTETIUM LU-177 VIPIVOTIDE TETRAXETAN
     Indication: Hormone-refractory prostate cancer
     Route: 065

REACTIONS (1)
  - Haematotoxicity [Fatal]
